FAERS Safety Report 7299074-2 (Version None)
Quarter: 2011Q1

REPORT INFORMATION
  Report Type: 
  Country: None (occurrence: None)
  Receive Date: 20110217
  Receipt Date: 20110217
  Transmission Date: 20110831
  Serious: Yes (Disabling, Other)
  Sender: FDA-Public Use
  Company Number: None

PATIENT
  Sex: Male
  Weight: 90.7194 kg

DRUGS (2)
  1. ALCOHOL PREP PADS ISOPROPYL ALCOHOL PAD TRIAD [Suspect]
     Indication: MULTIPLE SCLEROSIS
     Dates: start: 20101209, end: 20110120
  2. ALCOHOL PREP PADS ISOPROPYL ALCOHOL PAD TRIAD [Suspect]

REACTIONS (4)
  - SWELLING [None]
  - PRODUCT CONTAMINATION [None]
  - ANGIOEDEMA [None]
  - URTICARIA [None]
